FAERS Safety Report 16096062 (Version 1)
Quarter: 2019Q1

REPORT INFORMATION
  Report Type: Spontaneous
  Country: US (occurrence: US)
  Receive Date: 20190320
  Receipt Date: 20190320
  Transmission Date: 20190418
  Serious: No
  Sender: FDA-Public Use
  Company Number: US-SA-2019SA075212

PATIENT
  Sex: Male
  Weight: 113 kg

DRUGS (1)
  1. AVAPRO [Suspect]
     Active Substance: IRBESARTAN
     Dosage: UNK UNK, UNK

REACTIONS (1)
  - Vision blurred [Unknown]
